FAERS Safety Report 10283640 (Version 1)
Quarter: 2014Q3

REPORT INFORMATION
  Report Type: Spontaneous
  Country: US (occurrence: US)
  Receive Date: 20140708
  Receipt Date: 20140708
  Transmission Date: 20150326
  Serious: Yes (Hospitalization, Other)
  Sender: FDA-Public Use
  Company Number: US-AMGEN INC.-USASP2014050179

PATIENT
  Age: 27 Year
  Sex: Female

DRUGS (1)
  1. ENBREL [Suspect]
     Active Substance: ETANERCEPT
     Indication: PSORIATIC ARTHROPATHY
     Dosage: UNK
     Route: 065
     Dates: start: 20110904

REACTIONS (8)
  - Breast abscess [Recovered/Resolved]
  - Lactation disorder [Not Recovered/Not Resolved]
  - Breast pain [Recovered/Resolved]
  - Breast mass [Recovered/Resolved]
  - Wound [Recovered/Resolved]
  - Erythema [Recovered/Resolved]
  - Uterine contractions during pregnancy [Recovered/Resolved]
  - Nipple pain [Recovered/Resolved]

NARRATIVE: CASE EVENT DATE: 2014
